FAERS Safety Report 4551805-8 (Version None)
Quarter: 2005Q1

REPORT INFORMATION
  Report Type: 
  Country: None (occurrence: None)
  Receive Date: 20050111
  Receipt Date: 20041228
  Transmission Date: 20050727
  Serious: Yes (Life-Threatening, Hospitalization)
  Sender: FDA-Public Use
  Company Number: RS004863-J

PATIENT
  Age: 76 Year
  Sex: Female
  Weight: 65 kg

DRUGS (6)
  1. PARIET                   (RABEPRAZOLE) [Suspect]
     Indication: LIVER ABSCESS
     Dosage: 20 MG 1 IN 1 D ORAL
     Route: 048
     Dates: start: 20041007, end: 20041109
  2. SULPERAZON                           (SULPERAZON) [Concomitant]
  3. FAROM                    (FAROPENEM SODIUM) [Concomitant]
  4. KEFLEX [Concomitant]
  5. LEVOFLOXACIN [Concomitant]
  6. NEO MINOPHAGEN C (GLYCYRRHIZIC ACID, AMMONIUM SALT) [Concomitant]

REACTIONS (17)
  - ALANINE AMINOTRANSFERASE INCREASED [None]
  - APLASIA [None]
  - APLASTIC ANAEMIA [None]
  - ASPARTATE AMINOTRANSFERASE INCREASED [None]
  - BILIARY TRACT DISORDER [None]
  - BLOOD ALKALINE PHOSPHATASE INCREASED [None]
  - BLOOD LACTATE DEHYDROGENASE INCREASED [None]
  - EOSINOPHILIA [None]
  - GALLBLADDER DISORDER [None]
  - GAMMA-GLUTAMYLTRANSFERASE INCREASED [None]
  - HEPATIC FUNCTION ABNORMAL [None]
  - HYPERSENSITIVITY [None]
  - LIVER DISORDER [None]
  - MASS [None]
  - NASOPHARYNGITIS [None]
  - PANCYTOPENIA [None]
  - PHARYNGOLARYNGEAL PAIN [None]
